FAERS Safety Report 6713026-X (Version None)
Quarter: 2010Q2

REPORT INFORMATION
  Report Type: 
  Country: None (occurrence: None)
  Receive Date: 20100505
  Receipt Date: 20100505
  Transmission Date: 20101027
  Serious: No
  Sender: FDA-Public Use
  Company Number: None

PATIENT
  Age: 9 Month
  Sex: Male
  Weight: 5.4432 kg

DRUGS (4)
  1. CHILDREN'S TYLENOL INFANT [Suspect]
     Indication: PYREXIA
     Dosage: .2 4-6 HRS PO
     Route: 048
     Dates: start: 20100423, end: 20100426
  2. CHILDREN'S MOTRIN [Suspect]
     Indication: PYREXIA
     Dosage: .2 4-6 HRS PO
     Route: 048
     Dates: start: 20100423, end: 20100426
  3. TYLENOL INFANT DROPS [Concomitant]
  4. MOTRIN [Concomitant]

REACTIONS (1)
  - RASH [None]
